FAERS Safety Report 8596591-X (Version None)
Quarter: 2012Q3

REPORT INFORMATION
  Report Type: 
  Country: None (occurrence: None)
  Receive Date: 20120815
  Receipt Date: 20120807
  Transmission Date: 20120928
  Serious: Yes (Death, Life-Threatening, Hospitalization)
  Sender: FDA-Public Use
  Company Number: IN-BRISTOL-MYERS SQUIBB COMPANY-16825507

PATIENT
  Age: 54 Year
  Sex: Male
  Weight: 65 kg

DRUGS (7)
  1. ACETAMINOPHEN [Concomitant]
     Indication: PYREXIA
     Dates: start: 20120617, end: 20120620
  2. RANITIDINE [Concomitant]
     Indication: ANAPHYLAXIS PROPHYLAXIS
     Dates: start: 20120611, end: 20120613
  3. ETOPOSIDE [Suspect]
     Indication: NON-SMALL CELL LUNG CANCER STAGE III
     Dosage: D1-D5 EACH CYCLE,LAST DOSE:8JUN12
     Route: 042
     Dates: start: 20120604, end: 20120608
  4. ONDANSETRON [Concomitant]
     Indication: PROPHYLAXIS OF NAUSEA AND VOMITING
     Dates: start: 20120611, end: 20120613
  5. CISPLATIN [Suspect]
     Indication: NON-SMALL CELL LUNG CANCER STAGE III
     Dosage: D1 + D8 EACH CYCLE. LAST DOSE:11JUN12
     Route: 042
     Dates: start: 20120604, end: 20120611
  6. SALT [Concomitant]
     Indication: HYPONATRAEMIA
     Dates: start: 20120613, end: 20120618
  7. APREPITANT [Concomitant]
     Indication: PROPHYLAXIS OF NAUSEA AND VOMITING
     Dates: start: 20120611, end: 20120613

REACTIONS (6)
  - TRACHEAL HAEMORRHAGE [None]
  - HYPONATRAEMIA [None]
  - SEPSIS [None]
  - HYPOVOLAEMIC SHOCK [None]
  - RENAL FAILURE ACUTE [None]
  - FEBRILE NEUTROPENIA [None]
